FAERS Safety Report 6003944-2 (Version None)
Quarter: 2008Q4

REPORT INFORMATION
  Report Type: 
  Country: None (occurrence: None)
  Receive Date: 20081216
  Receipt Date: 20081212
  Transmission Date: 20090506
  Serious: Yes (Hospitalization)
  Sender: FDA-Public Use
  Company Number: FR-AVENTIS-200811290FR

PATIENT
  Age: 68 Year
  Sex: Female

DRUGS (10)
  1. FLAGYL [Suspect]
     Route: 042
     Dates: start: 20070906
  2. PREVISCAN                          /00789001/ [Suspect]
     Route: 048
     Dates: start: 20070912, end: 20070916
  3. HEPARINE SODIQUE CHOAY [Suspect]
     Route: 042
     Dates: start: 20070908, end: 20070914
  4. FENOFIBRATE [Suspect]
     Route: 048
  5. ROCEPHIN [Suspect]
     Route: 042
     Dates: start: 20070906
  6. AMLOD [Concomitant]
  7. FUROSEMIDE [Concomitant]
  8. MICARDIS [Concomitant]
  9. MODURETIC 5-50 [Concomitant]
  10. INSULATARD                         /00646002/ [Concomitant]

REACTIONS (3)
  - BLISTER [None]
  - DRUG INTERACTION [None]
  - SKIN HAEMORRHAGE [None]
